FAERS Safety Report 7575254-3 (Version None)
Quarter: 2011Q2

REPORT INFORMATION
  Report Type: 
  Country: None (occurrence: None)
  Receive Date: 20110627
  Receipt Date: 20080916
  Transmission Date: 20111010
  Serious: Yes (Other)
  Sender: FDA-Public Use
  Company Number: PHHY2008CA17742

PATIENT
  Sex: Male

DRUGS (2)
  1. ADALAT [Concomitant]
     Dosage: 60 MG
  2. DIOVAN HCT [Suspect]
     Indication: HYPERTENSION
     Dosage: 160/25 MG/DAY
     Route: 048

REACTIONS (2)
  - HEART RATE IRREGULAR [None]
  - TACHYCARDIA [None]
